FAERS Safety Report 14567977 (Version 1)
Quarter: 2018Q1

REPORT INFORMATION
  Report Type: Spontaneous
  Country: JP (occurrence: JP)
  Receive Date: 20180223
  Receipt Date: 20180223
  Transmission Date: 20180509
  Serious: Yes (Other)
  Sender: FDA-Public Use
  Company Number: JP-GLAXOSMITHKLINE-JP2017JPN037302

PATIENT
  Age: 46 Year
  Sex: Male

DRUGS (16)
  1. METFORMIN HYDROCHLORIDE MT [Concomitant]
     Dosage: 4 DF, BID
  2. TRULICITY [Concomitant]
     Active Substance: DULAGLUTIDE
     Dosage: 0.75 MG, WE
  3. FEBURIC TABLETS [Concomitant]
     Active Substance: FEBUXOSTAT
     Dosage: 2 DF, QD
  4. ADALAT-CR TABLET [Concomitant]
     Dosage: 2 DF, QD
     Dates: start: 20170127
  5. PREZISTA [Suspect]
     Active Substance: DARUNAVIR ETHANOLATE
     Indication: HIV INFECTION
     Dosage: UNK
     Route: 048
     Dates: start: 20120903, end: 20150816
  6. NORVIR [Suspect]
     Active Substance: RITONAVIR
     Indication: HIV INFECTION
     Dosage: UNK
     Route: 048
     Dates: start: 20120903, end: 20150816
  7. APIDRA INJECTION [Concomitant]
     Dosage: UNK UNK, TID
  8. BEZATOL SR TABLET [Concomitant]
     Dosage: 1 DF, BID
  9. ZACRAS [Concomitant]
     Active Substance: AMLODIPINE BESYLATE\AZILSARTAN
     Dosage: 1 DF, QD
  10. ALDACTONE-A TABLETS [Concomitant]
     Dosage: 1 DF, QD
  11. ADALAT-CR TABLET [Concomitant]
     Dosage: 1 DF, QD
  12. LUSEFI [Concomitant]
     Active Substance: LUSEOGLIFLOZIN
     Dosage: 1 DF, QD
  13. LANTUS XR [Concomitant]
     Active Substance: INSULIN GLARGINE
     Dosage: UNK UNK, QD
  14. TIVICAY [Suspect]
     Active Substance: DOLUTEGRAVIR SODIUM
     Indication: HIV INFECTION
     Dosage: 50 MG, QD
     Route: 048
     Dates: start: 20150817, end: 20170509
  15. CRESTOR [Concomitant]
     Active Substance: ROSUVASTATIN CALCIUM
     Dosage: 1 DF, QD
  16. EPZICOM [Suspect]
     Active Substance: ABACAVIR SULFATE\LAMIVUDINE
     Indication: HIV INFECTION
     Dosage: 1 DF, QD
     Route: 048
     Dates: start: 20120903, end: 20170509

REACTIONS (5)
  - Drug resistance [Not Recovered/Not Resolved]
  - Condition aggravated [Recovering/Resolving]
  - Hyperlipidaemia [Recovering/Resolving]
  - Treatment noncompliance [Unknown]
  - Viral mutation identified [Unknown]

NARRATIVE: CASE EVENT DATE: 20150316
